FAERS Safety Report 5697941-4 (Version None)
Quarter: 2008Q2

REPORT INFORMATION
  Report Type: 
  Country: None (occurrence: None)
  Receive Date: 20080408
  Receipt Date: 20080403
  Transmission Date: 20081010
  Serious: Yes (Other)
  Sender: FDA-Public Use
  Company Number: BE-ABBOTT-08P-013-0445546-00

PATIENT
  Sex: Male

DRUGS (1)
  1. REDUCTIL [Suspect]
     Indication: WEIGHT CONTROL

REACTIONS (1)
  - RETINAL DETACHMENT [None]
